FAERS Safety Report 6612699-X (Version None)
Quarter: 2010Q1

REPORT INFORMATION
  Report Type: 
  Country: None (occurrence: None)
  Receive Date: 20100303
  Receipt Date: 20100302
  Transmission Date: 20100710
  Serious: Yes (Life-Threatening, Hospitalization)
  Sender: FDA-Public Use
  Company Number: PE-PFIZER INC-2008049989

PATIENT
  Age: 73 Year
  Sex: Female
  Weight: 74 kg

DRUGS (23)
  1. IBUPROFEN [Suspect]
     Indication: ARTHRITIS
     Route: 048
     Dates: start: 20080606, end: 20080611
  2. NAPROXEN [Suspect]
     Indication: ARTHRITIS
     Route: 048
     Dates: start: 20080606, end: 20080611
  3. BLINDED *NO SUBJECT DRUG [Suspect]
     Indication: ARTHRITIS
     Route: 048
     Dates: start: 20080606, end: 20080611
  4. BLINDED *PLACEBO [Suspect]
     Indication: ARTHRITIS
     Route: 048
     Dates: start: 20080606, end: 20080611
  5. BLINDED CELECOXIB [Suspect]
     Indication: ARTHRITIS
     Route: 048
     Dates: start: 20080606, end: 20080611
  6. IBUPROFEN [Suspect]
     Route: 048
     Dates: start: 20080606, end: 20080611
  7. NAPROXEN [Suspect]
     Route: 048
     Dates: start: 20080606, end: 20080611
  8. IBUPROFEN [Suspect]
     Indication: RHEUMATOID ARTHRITIS
  9. NAPROXEN [Suspect]
     Indication: RHEUMATOID ARTHRITIS
  10. BLINDED *NO SUBJECT DRUG [Suspect]
     Indication: RHEUMATOID ARTHRITIS
  11. BLINDED *PLACEBO [Suspect]
     Indication: RHEUMATOID ARTHRITIS
  12. BLINDED CELECOXIB [Suspect]
     Indication: RHEUMATOID ARTHRITIS
  13. IBUPROFEN [Suspect]
  14. NAPROXEN [Suspect]
  15. NEXIUM [Suspect]
     Route: 048
     Dates: start: 20080606, end: 20080611
  16. RISEDRONATE SODIUM [Concomitant]
     Route: 048
     Dates: start: 20070301, end: 20080611
  17. CALCIUM CARBONATE [Concomitant]
     Route: 048
     Dates: start: 20070301, end: 20080611
  18. VITAMIN D [Concomitant]
     Route: 048
     Dates: start: 20070301, end: 20080611
  19. PREDNISONE [Concomitant]
     Route: 048
     Dates: start: 20000101, end: 20080611
  20. LEFLUNOMIDE [Concomitant]
     Route: 048
     Dates: start: 20020101, end: 20080611
  21. ENALAPRIL MALEATE [Concomitant]
     Route: 048
     Dates: start: 20050601, end: 20080611
  22. SIMVASTATIN [Concomitant]
     Route: 048
     Dates: start: 20060301, end: 20080611
  23. CELECOXIB [Concomitant]
     Dosage: UNK
     Route: 048
     Dates: start: 20050101, end: 20080526

REACTIONS (2)
  - ATRIAL FIBRILLATION [None]
  - MYOCARDIAL INFARCTION [None]
